FAERS Safety Report 24338324 (Version 1)
Quarter: 2024Q3

REPORT INFORMATION
  Report Type: Spontaneous
  Country: US (occurrence: US)
  Receive Date: 20240919
  Receipt Date: 20240919
  Transmission Date: 20241017
  Serious: Yes (Other)
  Sender: TEVA
  Company Number: US-TEVA-VS-3242851

PATIENT
  Age: 73 Year
  Sex: Female

DRUGS (1)
  1. QVAR REDIHALER [Suspect]
     Active Substance: BECLOMETHASONE DIPROPIONATE
     Indication: Product used for unknown indication
     Dosage: FOR OVER 20 YEARS
     Route: 055

REACTIONS (7)
  - Neoplasm malignant [Unknown]
  - Product quality issue [Unknown]
  - Device delivery system issue [Unknown]
  - Cough [Unknown]
  - Choking [Unknown]
  - Dyspnoea [Unknown]
  - Prescription drug used without a prescription [Unknown]

NARRATIVE: CASE EVENT DATE: 20240101
